FAERS Safety Report 7884775-5 (Version None)
Quarter: 2011Q4

REPORT INFORMATION
  Report Type: 
  Country: None (occurrence: None)
  Receive Date: 20111102
  Receipt Date: 20111031
  Transmission Date: 20120403
  Serious: Yes (Life-Threatening, Other)
  Sender: FDA-Public Use
  Company Number: JP-ROCHE-721313

PATIENT
  Sex: Female
  Weight: 40 kg

DRUGS (11)
  1. DECADRON [Suspect]
     Indication: NAUSEA
     Dosage: THREE DAYS AT CHEMOTHERAPY, ALSO INDICATED IN PHYSICAL DECONDITIONING/ASTHENIA
     Route: 048
     Dates: start: 20090512, end: 20100203
  2. LEVOLEUCOVORIN CALCIUM [Concomitant]
     Dosage: DOSAGE WERE UNCERTAIN
     Route: 041
  3. AVASTIN [Suspect]
     Indication: RECTAL CANCER METASTATIC
     Route: 041
     Dates: start: 20090508, end: 20100726
  4. IRINOTECAN HCL [Concomitant]
     Dosage: DOSAGE WERE UNCERTAIN
     Route: 041
  5. AVASTIN [Suspect]
     Route: 041
     Dates: start: 20100802, end: 20100802
  6. DECADRON [Suspect]
     Dosage: THREE DAYS AT CHEMOTHERAPY
     Route: 048
     Dates: start: 20100216, end: 20100616
  7. LOXONIN [Suspect]
     Indication: PAIN
     Dosage: TAKEN FOR PAIN
     Route: 048
     Dates: start: 20100607, end: 20100806
  8. DECADRON [Suspect]
     Route: 048
     Dates: start: 20100618, end: 20100806
  9. FLUOROURACIL [Concomitant]
     Dosage: DOSAGE WERE UNCERTAIN
     Route: 040
  10. PROMAC [Concomitant]
     Dosage: DOSAGE FORM; PERORAL AGENT
     Route: 048
     Dates: start: 20091102, end: 20100806
  11. FAMOTIDINE [Concomitant]
     Dosage: DOSAGE FORM: UNCERTAINTY
     Route: 065
     Dates: start: 20100429, end: 20100806

REACTIONS (5)
  - ASTHENIA [None]
  - NAUSEA [None]
  - DUODENAL PERFORATION [None]
  - PAIN [None]
  - PEPTIC ULCER [None]
